FAERS Safety Report 25040403 (Version 2)
Quarter: 2025Q3

REPORT INFORMATION
  Report Type: Report from Study
  Country: IN (occurrence: IN)
  Receive Date: 20250305
  Receipt Date: 20250915
  Transmission Date: 20251020
  Serious: Yes (Other)
  Sender: ROCHE
  Company Number: IN-002147023-NVSC2025IN035050

PATIENT
  Age: 53 Year
  Sex: Male

DRUGS (1)
  1. RANIBIZUMAB [Suspect]
     Active Substance: RANIBIZUMAB
     Indication: Diabetic retinopathy
     Route: 050
     Dates: start: 20241107

REACTIONS (5)
  - Vitreous haemorrhage [Unknown]
  - Cataract [Unknown]
  - Retinal thickening [Unknown]
  - Retinal haemorrhage [Unknown]
  - Eye laser scar [Unknown]
